FAERS Safety Report 5705170-0 (Version None)
Quarter: 2008Q2

REPORT INFORMATION
  Report Type: 
  Country: None (occurrence: None)
  Receive Date: 20080410
  Receipt Date: 20080404
  Transmission Date: 20081010
  Serious: Yes (Other)
  Sender: FDA-Public Use
  Company Number: 2008-02254

PATIENT
  Age: 14 Year
  Sex: Male

DRUGS (3)
  1. FIORINAL [Suspect]
     Indication: THROMBOSIS PROPHYLAXIS
     Dosage: 81 MG, DAILY, ORAL
     Route: 048
  2. IBUPROFEN [Suspect]
     Indication: PAIN
     Dosage: 300 MG, Q6H, ORAL
     Route: 048
  3. IBUPROFEN [Suspect]
     Indication: PYREXIA
     Dosage: 300 MG, Q6H, ORAL
     Route: 048

REACTIONS (3)
  - DIALYSIS [None]
  - NEPHRITIS INTERSTITIAL [None]
  - RENAL FAILURE ACUTE [None]
